FAERS Safety Report 11838889 (Version 1)
Quarter: 2015Q4

REPORT INFORMATION
  Report Type: Spontaneous
  Country: US (occurrence: US)
  Receive Date: 20151216
  Receipt Date: 20151216
  Transmission Date: 20160305
  Serious: No
  Sender: FDA-Public Use
  Company Number: US-HOSPIRA-2838110

PATIENT
  Age: 57 Year
  Sex: Female
  Weight: 126 kg

DRUGS (1)
  1. LIDOCAINE HYDROCHLORIDE. [Suspect]
     Active Substance: LIDOCAINE HYDROCHLORIDE
     Indication: PRODUCT USED FOR UNKNOWN INDICATION
     Route: 007
     Dates: start: 20150415, end: 20150415

REACTIONS (3)
  - Syringe issue [Unknown]
  - Poor quality drug administered [Unknown]
  - Product contamination physical [Unknown]

NARRATIVE: CASE EVENT DATE: 20150415
